FAERS Safety Report 9515931 (Version 1)
Quarter: 2013Q3

REPORT INFORMATION
  Report Type: Spontaneous
  Country: FR (occurrence: None)
  Receive Date: 20130909
  Receipt Date: 20130909
  Transmission Date: 20140515
  Serious: Yes (Hospitalization)
  Sender: FDA-Public Use
  Company Number: 1879594

PATIENT
  Age: 1 Month
  Sex: Female

DRUGS (2)
  1. CARBOPLATIN [Suspect]
     Indication: NEUROBLASTOMA
     Route: 042
     Dates: start: 20130430, end: 20130502
  2. ETOPOSIDE [Suspect]
     Indication: NEUROBLASTOMA
     Route: 042
     Dates: start: 20130430, end: 20130502

REACTIONS (4)
  - Histiocytosis haematophagic [None]
  - Bone marrow failure [None]
  - Septic shock [None]
  - Enterobacter infection [None]
